FAERS Safety Report 5550027-1 (Version None)
Quarter: 2007Q4

REPORT INFORMATION
  Report Type: 
  Country: None (occurrence: None)
  Receive Date: 20071212
  Receipt Date: 20071204
  Transmission Date: 20080405
  Serious: Yes (Other)
  Sender: FDA-Public Use
  Company Number: US-ASTRAZENECA-2007UW15612

PATIENT
  Age: 21740 Day
  Sex: Male
  Weight: 114.2 kg

DRUGS (5)
  1. ROSUVASTATIN [Suspect]
     Indication: CARDIOVASCULAR EVENT PROPHYLAXIS
     Route: 048
     Dates: start: 20031003, end: 20070709
  2. ZESTORETIC [Concomitant]
     Indication: HYPERTENSION
     Dosage: 10/12.5
     Route: 048
     Dates: start: 20070202
  3. NASONEX [Concomitant]
     Indication: POSTNASAL DRIP
     Dosage: AS NEEDED
     Route: 055
     Dates: start: 20000101
  4. RETINVITES [Concomitant]
     Indication: MEDICAL DIET
     Route: 048
     Dates: start: 20020101
  5. ZESTRIL [Concomitant]
     Indication: HYPERTENSION
     Route: 048
     Dates: start: 20030101, end: 20070202

REACTIONS (1)
  - AMYOTROPHIC LATERAL SCLEROSIS [None]
